FAERS Safety Report 21999817 (Version 2)
Quarter: 2023Q1

REPORT INFORMATION
  Report Type: Spontaneous
  Country: GB (occurrence: GB)
  Receive Date: 20230216
  Receipt Date: 20230301
  Transmission Date: 20230418
  Serious: Yes (Disabling, Other)
  Sender: FDA-Public Use
  Company Number: GB-AMGEN-GBRSP2023024702

PATIENT
  Age: 5 Year
  Sex: Male

DRUGS (1)
  1. PROLIA [Suspect]
     Active Substance: DENOSUMAB
     Indication: Osteochondrosis
     Dosage: UNK
     Route: 065

REACTIONS (3)
  - Osteochondrosis [Unknown]
  - Mobility decreased [Unknown]
  - Off label use [Unknown]
